FAERS Safety Report 7944843 (Version 2)
Quarter: 2012Q4

REPORT INFORMATION
  Report Type: 
  Country: US (occurrence: US)
  Receive Date: 20110515
  Receipt Date: 20121228
  Transmission Date: 20130627
  Serious: Yes (Death, Hospitalization)
  Sender: FDA-Public Use
  Company Number: US-MPIJNJ-2011-01871

PATIENT
  Age: 70 Year
  Sex: Female
  Weight: 73.16 kg

DRUGS (3)
  1. VELCADE [Suspect]
     Indication: MULTIPLE MYELOMA
     Dosage: 2.3 mg, 2/week
     Route: 042
     Dates: start: 20101018, end: 20101028
  2. MELPHALAN [Suspect]
     Indication: MULTIPLE MYELOMA
     Dosage: 2 mg, UNK
     Route: 048
     Dates: start: 20101018, end: 20101028
  3. PREDNISONE [Suspect]
     Indication: MULTIPLE MYELOMA
     Dosage: 20 mg, UNK
     Route: 048
     Dates: start: 20101018, end: 20101028

REACTIONS (3)
  - Respiratory failure [Fatal]
  - Staphylococcal sepsis [Fatal]
  - Intervertebral discitis [Fatal]
